FAERS Safety Report 8281339-9 (Version None)
Quarter: 2012Q2

REPORT INFORMATION
  Report Type: 
  Country: None (occurrence: None)
  Receive Date: 20120413
  Receipt Date: 20120406
  Transmission Date: 20120825
  Serious: No
  Sender: FDA-Public Use
  Company Number: US-PFIZER INC-2012088109

PATIENT
  Age: 42 Year
  Sex: Female

DRUGS (7)
  1. ATENOLOL [Concomitant]
     Indication: HYPERTENSION
  2. SULINDAC [Concomitant]
     Indication: ANTIINFLAMMATORY THERAPY
  3. NORTRIPTYLINE [Concomitant]
     Indication: DEPRESSION
  4. VITAMIN TAB [Concomitant]
  5. NORTRIPTYLINE [Concomitant]
     Indication: ANXIETY
  6. NORGESTREL AND ETHINYL ESTRADIOL [Suspect]
     Indication: CONTRACEPTION
  7. MAXALT [Concomitant]
     Indication: MIGRAINE

REACTIONS (2)
  - MENORRHAGIA [None]
  - PRODUCT QUALITY ISSUE [None]
